FAERS Safety Report 10366381 (Version 2)
Quarter: 2014Q4

REPORT INFORMATION
  Report Type: Spontaneous
  Country: US (occurrence: US)
  Receive Date: 20140806
  Receipt Date: 20141002
  Transmission Date: 20150528
  Serious: No
  Sender: FDA-Public Use
  Company Number: US-TEVA-499699USA

PATIENT
  Sex: Male

DRUGS (3)
  1. COPAXONE [Suspect]
     Active Substance: GLATIRAMER ACETATE
     Dates: start: 201408
  2. SIMVASTATIN. [Concomitant]
     Active Substance: SIMVASTATIN
  3. COPAXONE [Suspect]
     Active Substance: GLATIRAMER ACETATE
     Indication: MULTIPLE SCLEROSIS
     Dosage: 40 MILLIGRAM DAILY;
     Route: 058
     Dates: start: 201402, end: 201407

REACTIONS (3)
  - Injection site reaction [Unknown]
  - Rash [Unknown]
  - Urticaria [Unknown]
